FAERS Safety Report 4707733-8 (Version None)
Quarter: 2005Q2

REPORT INFORMATION
  Report Type: 
  Country: None (occurrence: None)
  Receive Date: 20050629
  Receipt Date: 20050321
  Transmission Date: 20051028
  Serious: No
  Sender: FDA-Public Use
  Company Number: 05P-163-0294747-00

PATIENT
  Age: 52 Year
  Sex: Male
  Weight: 81.6475 kg

DRUGS (5)
  1. HUMIRA [Suspect]
     Indication: RHEUMATOID ARTHRITIS
     Dosage: 40 MG, 1 IN 2 WK, SUBCUTANEOUS
     Route: 058
     Dates: start: 20050307
  2. ARTHROTEC [Concomitant]
  3. ATENOLOL [Concomitant]
  4. MULTI-VITAMINS [Concomitant]
  5. ACETAMINOPHEN [Concomitant]

REACTIONS (1)
  - RHEUMATOID ARTHRITIS [None]
